FAERS Safety Report 5601553-8 (Version None)
Quarter: 2008Q1

REPORT INFORMATION
  Report Type: 
  Country: None (occurrence: None)
  Receive Date: 20080124
  Receipt Date: 20080122
  Transmission Date: 20080703
  Serious: Yes (Other)
  Sender: FDA-Public Use
  Company Number: US-ASTRAZENECA-2008UW01608

PATIENT
  Age: 76 Year
  Sex: Male

DRUGS (1)
  1. ZOLADEX [Suspect]
     Route: 058

REACTIONS (6)
  - CEREBROVASCULAR ACCIDENT [None]
  - FACIAL PALSY [None]
  - HEADACHE [None]
  - NAUSEA [None]
  - PITUITARY TUMOUR BENIGN [None]
  - VOMITING [None]
